FAERS Safety Report 4297730-1 (Version None)
Quarter: 2004Q1

REPORT INFORMATION
  Report Type: 
  Country: None (occurrence: None)
  Receive Date: 20040126
  Receipt Date: 20031103
  Transmission Date: 20041129
  Serious: No
  Sender: FDA-Public Use
  Company Number: USA031151524

PATIENT
  Age: 8 Year
  Sex: Male
  Weight: 28 kg

DRUGS (3)
  1. STRATTERA [Suspect]
     Indication: ATTENTION DEFICIT/HYPERACTIVITY DISORDER
     Dosage: 25 MG/IN THE EVENING
     Dates: start: 20031005
  2. STRATTERA [Suspect]
     Indication: PERVASIVE DEVELOPMENTAL DISORDER
     Dosage: 25 MG/IN THE EVENING
     Dates: start: 20031005
  3. .. [Suspect]

REACTIONS (5)
  - ATTENTION DEFICIT/HYPERACTIVITY DISORDER [None]
  - FATIGUE [None]
  - FLATULENCE [None]
  - MYDRIASIS [None]
  - PERVASIVE DEVELOPMENTAL DISORDER [None]
